FAERS Safety Report 15801433 (Version 1)
Quarter: 2019Q1

REPORT INFORMATION
  Report Type: Spontaneous
  Country: US (occurrence: US)
  Receive Date: 20190109
  Receipt Date: 20190109
  Transmission Date: 20190417
  Serious: Yes (Hospitalization, Other)
  Sender: FDA-Public Use
  Company Number: US-AUROBINDO-AUR-APL-2018-063884

PATIENT
  Age: 62 Year
  Sex: Female
  Weight: 77 kg

DRUGS (3)
  1. LOSARTAN POTASSIUM / HYDROCHLOROTHIAZIDE [Interacting]
     Active Substance: HYDROCHLOROTHIAZIDE\LOSARTAN POTASSIUM
     Indication: PRODUCT USED FOR UNKNOWN INDICATION
     Dosage: UNK
     Route: 065
  2. ELIQUIS [Concomitant]
     Active Substance: APIXABAN
     Indication: PRODUCT USED FOR UNKNOWN INDICATION
  3. DEXAMETHASONE SODIUM PHOSPHATE INJECTION USP 4MG/ML [Suspect]
     Active Substance: DEXAMETHASONE SODIUM PHOSPHATE
     Indication: ARTHRITIS
     Dosage: UNK
     Route: 065
     Dates: start: 20181129, end: 20181129

REACTIONS (5)
  - Peripheral swelling [Not Recovered/Not Resolved]
  - Myocardial infarction [Recovered/Resolved]
  - Drug interaction [Unknown]
  - Hypertension [Recovering/Resolving]
  - Dyspnoea [Recovering/Resolving]

NARRATIVE: CASE EVENT DATE: 20181203
